FAERS Safety Report 15396553 (Version 1)
Quarter: 2018Q3

REPORT INFORMATION
  Report Type: Other
  Country: US (occurrence: US)
  Receive Date: 20180918
  Receipt Date: 20180918
  Transmission Date: 20181010
  Serious: No
  Sender: FDA-Public Use
  Company Number: US-LEADIANT BIOSCIENCES INC-2018STPI000203

PATIENT
  Sex: Male

DRUGS (5)
  1. KEPPRA [Concomitant]
     Active Substance: LEVETIRACETAM
  2. ONDANSETRON [Concomitant]
     Active Substance: ONDANSETRON
  3. LEVETIRACETAM. [Concomitant]
     Active Substance: LEVETIRACETAM
  4. WARFARIN [Concomitant]
     Active Substance: WARFARIN
  5. MATULANE [Suspect]
     Active Substance: PROCARBAZINE HYDROCHLORIDE
     Indication: BRAIN NEOPLASM MALIGNANT
     Dosage: 100 MG, QD
     Route: 048

REACTIONS (1)
  - Fatigue [Unknown]
